FAERS Safety Report 10998546 (Version 1)
Quarter: 2015Q2

REPORT INFORMATION
  Report Type: Spontaneous
  Country: MA (occurrence: None)
  Receive Date: 20150406
  Receipt Date: 20150406
  Transmission Date: 20150821
  Serious: Yes (Other)
  Sender: FDA-Public Use
  Company Number: 2015SCAL000108

PATIENT
  Age: 85 Year
  Sex: Female

DRUGS (2)
  1. HYDROCHLOROTHIAZIDE ( HYDROCHLOROTHIAZIDE) [Suspect]
     Active Substance: HYDROCHLOROTHIAZIDE
     Indication: PRODUCT USED FOR UNKNOWN INDICATION
     Dates: start: 201211
  2. AMLODIPINE W/VALSARTAN (AMLODIPINE, VALSARTAN) [Concomitant]

REACTIONS (1)
  - Dermatitis bullous [None]
